FAERS Safety Report 7919297-6 (Version None)
Quarter: 2011Q4

REPORT INFORMATION
  Report Type: 
  Country: None (occurrence: None)
  Receive Date: 20111117
  Receipt Date: 20111111
  Transmission Date: 20120403
  Serious: Yes (Other)
  Sender: FDA-Public Use
  Company Number: CH-JNJFOC-20111004358

PATIENT
  Sex: Female
  Weight: 80 kg

DRUGS (7)
  1. XARELTO [Suspect]
     Indication: PROPHYLAXIS
     Route: 048
     Dates: start: 20110613, end: 20110831
  2. TRAMADOL HYDROCHLORIDE [Concomitant]
     Dates: start: 20110614, end: 20110614
  3. NOVALGIN [Concomitant]
     Dates: start: 20110610, end: 20110816
  4. NEXIUM [Concomitant]
     Dates: start: 20110610, end: 20110620
  5. DICLOFENAC SODIUM [Concomitant]
     Dates: start: 20110610, end: 20110620
  6. XARELTO [Suspect]
     Route: 048
  7. ACETAMINOPHEN [Concomitant]
     Dates: start: 20110610, end: 20110817

REACTIONS (1)
  - THROMBOSIS [None]
